FAERS Safety Report 8301932-4 (Version None)
Quarter: 2012Q2

REPORT INFORMATION
  Report Type: 
  Country: None (occurrence: None)
  Receive Date: 20120420
  Receipt Date: 20120418
  Transmission Date: 20120825
  Serious: Yes (Other)
  Sender: FDA-Public Use
  Company Number: DE-ROCHE-1047167

PATIENT
  Sex: Male

DRUGS (3)
  1. BONIVA [Suspect]
     Indication: OSTEOPOROSIS
     Route: 042
     Dates: start: 20110908, end: 20120112
  2. DEKRISTOL [Concomitant]
     Indication: OSTEOPOROSIS
     Route: 048
     Dates: start: 20110908
  3. METAMIZOL [Concomitant]
     Indication: PAIN
     Route: 048
     Dates: start: 20110926

REACTIONS (5)
  - ABDOMINAL PAIN UPPER [None]
  - ERECTILE DYSFUNCTION [None]
  - NAUSEA [None]
  - BACK PAIN [None]
  - DIARRHOEA [None]
